FAERS Safety Report 13948201 (Version 1)
Quarter: 2017Q3

REPORT INFORMATION
  Report Type: Spontaneous
  Country: US (occurrence: US)
  Receive Date: 20170908
  Receipt Date: 20170908
  Transmission Date: 20171128
  Serious: Yes (Other)
  Sender: FDA-Public Use
  Company Number: US-APOTEX-2017AP017548

PATIENT
  Age: 48 Year
  Sex: Male

DRUGS (13)
  1. ITRACONAZOLE. [Suspect]
     Active Substance: ITRACONAZOLE
     Indication: EYE INFECTION
  2. VORICONAZOLE. [Suspect]
     Active Substance: VORICONAZOLE
     Indication: FUSARIUM INFECTION
     Dosage: 320 MG, Q.12H
     Route: 042
  3. FLUCONAZOLE TABLETS [Suspect]
     Active Substance: FLUCONAZOLE
     Indication: FUSARIUM INFECTION
     Route: 065
  4. FLUCONAZOLE TABLETS [Suspect]
     Active Substance: FLUCONAZOLE
     Indication: EYE INFECTION
  5. ITRACONAZOLE. [Suspect]
     Active Substance: ITRACONAZOLE
     Indication: FUSARIUM INFECTION
     Dosage: 200 MG, BID
     Route: 048
  6. TRIFLURIDINE. [Suspect]
     Active Substance: TRIFLURIDINE
     Indication: OPHTHALMIC HERPES SIMPLEX
     Route: 061
  7. VORICONAZOLE. [Suspect]
     Active Substance: VORICONAZOLE
     Dosage: 50 MCG/0.1 ML
     Route: 031
  8. VORICONAZOLE. [Suspect]
     Active Substance: VORICONAZOLE
     Indication: EYE INFECTION
     Dosage: 200 MG, BID
     Route: 048
  9. AMPHOTERICIN B. [Suspect]
     Active Substance: AMPHOTERICIN B
     Indication: EYE INFECTION
     Dosage: 5 MCG/0.1 ML, ANTERIOR CHAMBER INJECTIONS
     Route: 031
  10. AMPHOTERICIN B. [Suspect]
     Active Substance: AMPHOTERICIN B
     Indication: FUSARIUM INFECTION
     Dosage: 0.5 %, Q.H.
     Route: 061
  11. AMPHOTERICIN B. [Suspect]
     Active Substance: AMPHOTERICIN B
     Dosage: 10 MCG/0.1 ML, INTRAVITREAL INJECTIONS
     Route: 031
  12. NATAMYCIN [Suspect]
     Active Substance: NATAMYCIN
     Indication: FUSARIUM INFECTION
     Dosage: 0.5 %, Q.H.
     Route: 065
  13. NATAMYCIN [Suspect]
     Active Substance: NATAMYCIN
     Indication: EYE INFECTION

REACTIONS (1)
  - Drug resistance [Unknown]
